FAERS Safety Report 9719266 (Version 1)
Quarter: 2013Q4

REPORT INFORMATION
  Report Type: Report from Study
  Country: US (occurrence: US)
  Receive Date: 20131127
  Receipt Date: 20131127
  Transmission Date: 20140711
  Serious: Yes (Hospitalization)
  Sender: FDA-Public Use
  Company Number: PHEH2013US024630

PATIENT
  Sex: Male
  Weight: 2.47 kg

DRUGS (1)
  1. MYFORTIC [Suspect]
     Dosage: UNK UKN, MATERNAL DOSE: 360 MG BID ORALLY
     Route: 064

REACTIONS (2)
  - Respiratory disorder [Recovered/Resolved]
  - Foetal exposure during pregnancy [Unknown]
